FAERS Safety Report 4651745-X (Version None)
Quarter: 2005Q2

REPORT INFORMATION
  Report Type: 
  Country: None (occurrence: None)
  Receive Date: 20050404
  Receipt Date: 20050103
  Transmission Date: 20051028
  Serious: No
  Sender: FDA-Public Use
  Company Number: USA050187288

PATIENT
  Age: 41 Year
  Sex: Male

DRUGS (1)
  1. CYMBALTA [Suspect]
     Indication: ATTENTION DEFICIT/HYPERACTIVITY DISORDER
     Dosage: 30 MG DAY
     Dates: start: 20041120

REACTIONS (1)
  - FEELING ABNORMAL [None]
